FAERS Safety Report 8275811-5 (Version None)
Quarter: 2012Q2

REPORT INFORMATION
  Report Type: 
  Country: None (occurrence: None)
  Receive Date: 20120410
  Receipt Date: 20120410
  Transmission Date: 20120825
  Serious: Yes (Life-Threatening, Disabling)
  Sender: FDA-Public Use
  Company Number: None

PATIENT
  Sex: Female
  Weight: 82.5547 kg

DRUGS (1)
  1. LORAZEPAM [Suspect]
     Indication: ANXIETY
     Dosage: 1 EVERY 8 HOURS
     Dates: start: 20120223

REACTIONS (7)
  - SHOCK [None]
  - CONVULSION [None]
  - LOSS OF CONSCIOUSNESS [None]
  - FEAR [None]
  - DEPRESSED MOOD [None]
  - DYSPEPSIA [None]
  - INSOMNIA [None]
